FAERS Safety Report 9321957 (Version 4)
Quarter: 2013Q3

REPORT INFORMATION
  Report Type: Spontaneous
  Country: IT (occurrence: IT)
  Receive Date: 20130531
  Receipt Date: 20130718
  Transmission Date: 20140515
  Serious: Yes (Hospitalization)
  Sender: FDA-Public Use
  Company Number: IT-009507513-1305ITA014974

PATIENT
  Age: 27 Year
  Sex: Female

DRUGS (2)
  1. TEMODAL [Suspect]
     Indication: MALIGNANT GLIOMA
     Dosage: 75 MG/KG, DAILY
     Route: 048
     Dates: start: 20130311, end: 20130420
  2. VIDATOX [Suspect]
     Dosage: DROPS AT 33% IN ALCOHOL
     Dates: start: 20130329, end: 20130427

REACTIONS (2)
  - Hepatitis [Recovered/Resolved]
  - Jaundice [Recovered/Resolved]
